FAERS Safety Report 7813904-4 (Version None)
Quarter: 2011Q4

REPORT INFORMATION
  Report Type: 
  Country: None (occurrence: None)
  Receive Date: 20111014
  Receipt Date: 20111012
  Transmission Date: 20120403
  Serious: Yes (Other)
  Sender: FDA-Public Use
  Company Number: US-PFIZER INC-2009283622

PATIENT
  Sex: Male
  Weight: 132 kg

DRUGS (4)
  1. ATENOLOL [Concomitant]
     Dosage: UNK
  2. PLAVIX [Concomitant]
     Dosage: UNK
  3. WARFARIN [Concomitant]
     Dosage: 5 MG, UNK
  4. LIPITOR [Suspect]
     Indication: BLOOD CHOLESTEROL ABNORMAL
     Dosage: UNK,ONCE A DAY
     Route: 048

REACTIONS (4)
  - CHEST PAIN [None]
  - STENT PLACEMENT [None]
  - CARDIAC OPERATION [None]
  - ARTERIAL OCCLUSIVE DISEASE [None]
